FAERS Safety Report 23146470 (Version 1)
Quarter: 2023Q4

REPORT INFORMATION
  Report Type: Other
  Country: None (occurrence: US)
  Receive Date: 20231104
  Receipt Date: 20231104
  Transmission Date: 20240110
  Serious: Yes (Death)
  Sender: FDA-Public Use
  Company Number: US-Amphastar Pharmaceuticals, Inc.-2147824

PATIENT
  Age: 69 Year
  Sex: Male

DRUGS (5)
  1. BAQSIMI [Suspect]
     Active Substance: GLUCAGON
     Indication: Diabetes mellitus
     Dates: start: 20230120
  2. BAQSIMI [Suspect]
     Active Substance: GLUCAGON
  3. BASAGLAR [Suspect]
     Active Substance: INSULIN GLARGINE
     Dates: start: 20230119
  4. HUMALOG [Suspect]
     Active Substance: INSULIN LISPRO
     Dates: start: 20230216
  5. HUMULIN N [Suspect]
     Active Substance: INSULIN HUMAN
     Dates: start: 20230124

REACTIONS (1)
  - Death [None]
